FAERS Safety Report 12683108 (Version 1)
Quarter: 2016Q3

REPORT INFORMATION
  Report Type: Spontaneous
  Country: US (occurrence: None)
  Receive Date: 20160824
  Receipt Date: 20160824
  Transmission Date: 20161109
  Serious: No
  Sender: FDA-Public Use
  Company Number: None

PATIENT
  Age: 69 Year
  Sex: Female
  Weight: 63.5 kg

DRUGS (23)
  1. LIVALO [Suspect]
     Active Substance: PITAVASTATIN CALCIUM
     Indication: BLOOD CHOLESTEROL INCREASED
     Route: 048
     Dates: start: 20160801, end: 20160805
  2. PREVACID [Concomitant]
     Active Substance: LANSOPRAZOLE
  3. DYMISTA [Concomitant]
     Active Substance: AZELASTINE HYDROCHLORIDE\FLUTICASONE PROPIONATE
  4. FISH OIL [Concomitant]
     Active Substance: FISH OIL
  5. TYLENOL [Concomitant]
     Active Substance: ACETAMINOPHEN
  6. PROAIR HFA [Concomitant]
     Active Substance: ALBUTEROL SULFATE
  7. CALCIUM [Concomitant]
     Active Substance: CALCIUM
  8. ZYRTEC [Concomitant]
     Active Substance: CETIRIZINE HYDROCHLORIDE
  9. MUSINEX [Concomitant]
  10. GENTEAL SEVERE [Concomitant]
     Active Substance: HYPROMELLOSE 2910 (4000 MPA.S)
  11. CELEBREX [Concomitant]
     Active Substance: CELECOXIB
  12. TRAZODONE [Concomitant]
     Active Substance: TRAZODONE HYDROCHLORIDE
  13. MAGNESIUM [Concomitant]
     Active Substance: MAGNESIUM
  14. FLAXSEED [Concomitant]
     Active Substance: FLAX SEED
  15. VITAMIN D [Concomitant]
     Active Substance: CHOLECALCIFEROL
  16. RESTASIS [Concomitant]
     Active Substance: CYCLOSPORINE
  17. ESTRDIOL [Concomitant]
  18. NASCOBAL [Concomitant]
     Active Substance: CYANOCOBALAMIN
  19. TRIAMCINOLONE [Concomitant]
     Active Substance: TRIAMCINOLONE
  20. HYDROCODONE-APAP [Concomitant]
     Active Substance: ACETAMINOPHEN\HYDROCODONE
  21. SUDAFED [Concomitant]
     Active Substance: PSEUDOEPHEDRINE HYDROCHLORIDE
  22. VITAMIN E [Concomitant]
     Active Substance: .ALPHA.-TOCOPHEROL
  23. TRAMADOL. [Concomitant]
     Active Substance: TRAMADOL

REACTIONS (5)
  - Dizziness [None]
  - Vision blurred [None]
  - Diplopia [None]
  - Condition aggravated [None]
  - Myalgia [None]

NARRATIVE: CASE EVENT DATE: 20160803
